FAERS Safety Report 5571851-5 (Version None)
Quarter: 2007Q4

REPORT INFORMATION
  Report Type: 
  Country: None (occurrence: None)
  Receive Date: 20071221
  Receipt Date: 20071114
  Transmission Date: 20080405
  Serious: No
  Sender: FDA-Public Use
  Company Number: US-BAYER-US-2007-043441

PATIENT
  Age: 29 Year
  Sex: Female
  Weight: 82 kg

DRUGS (4)
  1. YAZ [Suspect]
     Indication: CONTRACEPTION
     Route: 048
     Dates: start: 20061101
  2. SYNTHROID [Concomitant]
  3. ZOLOFT [Concomitant]
  4. PROTONIX [Concomitant]

REACTIONS (1)
  - MENSTRUATION DELAYED [None]
